FAERS Safety Report 5444152-3 (Version None)
Quarter: 2007Q3

REPORT INFORMATION
  Report Type: 
  Country: None (occurrence: None)
  Receive Date: 20070904
  Receipt Date: 20070904
  Transmission Date: 20080115
  Serious: Yes (Other)
  Sender: FDA-Public Use
  Company Number: None

PATIENT
  Age: 79 Year
  Sex: Female
  Weight: 56.4728 kg

DRUGS (2)
  1. AVELOX [Suspect]
     Indication: CARDIAC FAILURE CONGESTIVE
     Dosage: 400MG QDAY PO 1ST DOSE 0930
     Route: 048
     Dates: start: 20070821
  2. AVELOX [Suspect]
     Indication: CHRONIC OBSTRUCTIVE PULMONARY DISEASE
     Dosage: 400MG QDAY PO 1ST DOSE 0930
     Route: 048
     Dates: start: 20070821

REACTIONS (3)
  - ERYTHEMA [None]
  - HYPOAESTHESIA ORAL [None]
  - PRURITUS [None]
